FAERS Safety Report 4474343-X (Version None)
Quarter: 2004Q4

REPORT INFORMATION
  Report Type: 
  Country: None (occurrence: None)
  Receive Date: 20041014
  Receipt Date: 20041004
  Transmission Date: 20050328
  Serious: Yes (Hospitalization)
  Sender: FDA-Public Use
  Company Number: PHBS2004JP13286

PATIENT
  Age: 78 Year
  Sex: Male

DRUGS (1)
  1. VOLTAREN [Suspect]
     Indication: PYREXIA
     Route: 054
     Dates: start: 20040702, end: 20040702

REACTIONS (2)
  - MULTI-ORGAN FAILURE [None]
  - TOXIC EPIDERMAL NECROLYSIS [None]
